FAERS Safety Report 8000310-5 (Version None)
Quarter: 2011Q4

REPORT INFORMATION
  Report Type: 
  Country: None (occurrence: None)
  Receive Date: 20111123
  Receipt Date: 20110815
  Transmission Date: 20120403
  Serious: Yes (Other)
  Sender: FDA-Public Use
  Company Number: 331594

PATIENT
  Age: 79 Year
  Sex: Male

DRUGS (9)
  1. NORVASC [Concomitant]
  2. LIPITOR [Concomitant]
  3. FLOMAX [Concomitant]
  4. COUMADIN [Concomitant]
  5. ALTACE [Concomitant]
  6. PROSCAR [Concomitant]
  7. LASIX [Concomitant]
  8. COREG [Concomitant]
  9. VICTOZA [Suspect]
     Indication: TYPE 2 DIABETES MELLITUS
     Dates: start: 20110422, end: 20110426

REACTIONS (2)
  - NAUSEA [None]
  - VOMITING [None]
